FAERS Safety Report 16042901 (Version 1)
Quarter: 2019Q1

REPORT INFORMATION
  Report Type: Spontaneous
  Country: FR (occurrence: FR)
  Receive Date: 20190306
  Receipt Date: 20190306
  Transmission Date: 20190418
  Serious: Yes (Other)
  Sender: FDA-Public Use
  Company Number: FR-MYLANLABS-2019M1020226

PATIENT
  Age: 64 Year
  Sex: Male
  Weight: 82 kg

DRUGS (4)
  1. ZOXAN                              /00639302/ [Suspect]
     Active Substance: DOXAZOSIN MESYLATE
     Indication: PROSTATE CANCER
     Dosage: 8 MILLIGRAM, QD
     Route: 048
  2. LISINOPRIL. [Suspect]
     Active Substance: LISINOPRIL
     Indication: HYPERTENSION
     Dosage: 20 MILLIGRAM, QD
     Route: 048
  3. CLOMIPRAMINE [Suspect]
     Active Substance: CLOMIPRAMINE
     Indication: PRODUCT USED FOR UNKNOWN INDICATION
     Dosage: 25 MILLIGRAM, QD
     Route: 048
  4. PROPRANOLOL [Suspect]
     Active Substance: PROPRANOLOL HYDROCHLORIDE
     Indication: BLADDER PAIN
     Dosage: 40 MILLIGRAM, QD
     Route: 048
     Dates: start: 20180612, end: 20180627

REACTIONS (2)
  - Hypotension [Recovering/Resolving]
  - Bradycardia [Recovering/Resolving]

NARRATIVE: CASE EVENT DATE: 20180627
